FAERS Safety Report 6523452-X (Version None)
Quarter: 2009Q4

REPORT INFORMATION
  Report Type: 
  Country: None (occurrence: None)
  Receive Date: 20091231
  Receipt Date: 20091222
  Transmission Date: 20100525
  Serious: Yes (Life-Threatening)
  Sender: FDA-Public Use
  Company Number: IT-JNJFOC-20091206956

PATIENT
  Age: 29 Year
  Sex: Female

DRUGS (2)
  1. REMICADE [Suspect]
     Indication: PSORIASIS
     Route: 042
     Dates: start: 20090501, end: 20091031
  2. ORAL CONTRACEPTIVE [Concomitant]
     Indication: CONTRACEPTION
     Route: 048

REACTIONS (1)
  - BREAST CANCER [None]
